FAERS Safety Report 24372457 (Version 1)
Quarter: 2024Q3

REPORT INFORMATION
  Report Type: Spontaneous
  Country: NG (occurrence: NG)
  Receive Date: 20240927
  Receipt Date: 20240927
  Transmission Date: 20241016
  Serious: Yes (Hospitalization)
  Sender: RANBAXY
  Company Number: NG-SUN PHARMACEUTICAL INDUSTRIES LTD-2024R1-469829

PATIENT
  Age: 29 Year
  Sex: Male

DRUGS (4)
  1. ONDANSETRON [Suspect]
     Active Substance: ONDANSETRON
     Indication: Gastroenteritis
     Dosage: UNK
     Route: 065
  2. ONDANSETRON [Suspect]
     Active Substance: ONDANSETRON
     Indication: Malaria
  3. PROMETHAZINE [Suspect]
     Active Substance: PROMETHAZINE HYDROCHLORIDE
     Indication: Gastroenteritis
     Dosage: 25 MILLIGRAM
     Route: 042
  4. PROMETHAZINE [Suspect]
     Active Substance: PROMETHAZINE HYDROCHLORIDE
     Indication: Malaria

REACTIONS (1)
  - Thrombophlebitis [Recovered/Resolved]
